FAERS Safety Report 13286403 (Version 1)
Quarter: 2017Q1

REPORT INFORMATION
  Report Type: Report from Study
  Country: None (occurrence: US)
  Receive Date: 20170301
  Receipt Date: 20170301
  Transmission Date: 20170428
  Serious: Yes (Other)
  Sender: FDA-Public Use
  Company Number: US-ABBVIE-17K-163-1833984-00

PATIENT
  Age: 66 Year
  Sex: Female

DRUGS (2)
  1. HUMIRA [Suspect]
     Active Substance: ADALIMUMAB
     Indication: PSORIASIS
     Dosage: DAY 1
     Route: 058
     Dates: start: 201609, end: 201609
  2. HUMIRA [Suspect]
     Active Substance: ADALIMUMAB
     Dosage: DAY 8
     Route: 058
     Dates: start: 201610

REACTIONS (10)
  - Pruritus [Unknown]
  - Nasopharyngitis [Unknown]
  - Pain [Unknown]
  - Anger [Unknown]
  - Frustration tolerance decreased [Unknown]
  - Basal cell carcinoma [Unknown]
  - Helplessness [Unknown]
  - Skin irritation [Unknown]
  - Heavy exposure to ultraviolet light [Unknown]
  - Emotional distress [Unknown]

NARRATIVE: CASE EVENT DATE: 2016
